FAERS Safety Report 8509344-5 (Version None)
Quarter: 2012Q3

REPORT INFORMATION
  Report Type: 
  Country: None (occurrence: None)
  Receive Date: 20120713
  Receipt Date: 20091207
  Transmission Date: 20120928
  Serious: Yes (Hospitalization, Other)
  Sender: FDA-Public Use
  Company Number: ZA-ROCHE-1087109

PATIENT
  Sex: Male

DRUGS (4)
  1. CELLCEPT [Suspect]
     Route: 048
  2. CELLCEPT [Suspect]
     Indication: RENAL TRANSPLANT
     Route: 048
  3. PREDNISONE [Concomitant]
     Route: 065
  4. PROGRAF [Concomitant]
     Route: 065

REACTIONS (2)
  - PNEUMONIA [None]
  - HERNIA [None]
